FAERS Safety Report 14609992 (Version 2)
Quarter: 2018Q2

REPORT INFORMATION
  Report Type: Spontaneous
  Country: UY (occurrence: UY)
  Receive Date: 20180307
  Receipt Date: 20180522
  Transmission Date: 20180711
  Serious: Yes (Other)
  Sender: FDA-Public Use
  Company Number: UY-PFIZER INC-2018086837

PATIENT
  Age: 10 Year
  Sex: Male

DRUGS (3)
  1. GENOTROPIN [Suspect]
     Active Substance: SOMATROPIN
     Indication: DENT^S DISEASE
     Dosage: 0.8 MG, DAILY
     Dates: start: 20111201, end: 201705
  2. GENOTROPIN [Suspect]
     Active Substance: SOMATROPIN
     Indication: RENAL DISORDER
     Dosage: 0.9 MG, DAILY
  3. GENOTROPIN [Suspect]
     Active Substance: SOMATROPIN
     Indication: CHRONIC KIDNEY DISEASE

REACTIONS (1)
  - Renal failure [Recovering/Resolving]
